FAERS Safety Report 10063415 (Version 3)
Quarter: 2014Q2

REPORT INFORMATION
  Report Type: Spontaneous
  Country: US (occurrence: US)
  Receive Date: 20140407
  Receipt Date: 20140603
  Transmission Date: 20141212
  Serious: No
  Sender: FDA-Public Use
  Company Number: US-PFIZER INC-2014096534

PATIENT
  Sex: Female

DRUGS (7)
  1. EFFEXOR XR [Suspect]
     Indication: HOT FLUSH
     Dosage: 75 MG, 1X/DAY
     Route: 048
  2. AZITHROMYCIN [Interacting]
     Indication: EAR INFECTION BACTERIAL
     Dosage: 500MG BY TAKING TWO TABLETS OF 250MG FOR FIRST DAY
     Route: 048
  3. AZITHROMYCIN [Interacting]
     Indication: PHARYNGITIS
     Dosage: 250MG ONCE A DAY FOR NEXT 4 DAYS
     Route: 048
  4. AZITHROMYCIN [Interacting]
     Indication: SINUSITIS
  5. AZITHROMYCIN [Interacting]
     Indication: BACTERIAL INFECTION
  6. SYNTHROID [Concomitant]
     Dosage: UNK
  7. FOLIC ACID [Concomitant]
     Dosage: UNK

REACTIONS (7)
  - Drug interaction [Unknown]
  - Palpitations [Unknown]
  - Heart rate increased [Unknown]
  - Activities of daily living impaired [Unknown]
  - Fatigue [Unknown]
  - Dyspnoea [Unknown]
  - Feeling abnormal [Unknown]
